FAERS Safety Report 12213226 (Version 2)
Quarter: 2016Q2

REPORT INFORMATION
  Report Type: Spontaneous
  Country: FR (occurrence: FR)
  Receive Date: 20160328
  Receipt Date: 20160601
  Transmission Date: 20160815
  Serious: Yes (Other)
  Sender: FDA-Public Use
  Company Number: FR-HOSPIRA-3214836

PATIENT
  Age: 61 Year
  Sex: Female
  Weight: 66 kg

DRUGS (1)
  1. OXALIPLATIN. [Suspect]
     Active Substance: OXALIPLATIN
     Indication: ADENOCARCINOMA OF COLON
     Dosage: 150 MG, UNK
     Route: 041
     Dates: start: 20151214, end: 20151214

REACTIONS (4)
  - Eyelid oedema [Recovered/Resolved]
  - Throat irritation [Recovered/Resolved]
  - Pruritus allergic [Recovered/Resolved]
  - Anaphylactic reaction [Recovered/Resolved]

NARRATIVE: CASE EVENT DATE: 20151214
